FAERS Safety Report 13486550 (Version 6)
Quarter: 2017Q2

REPORT INFORMATION
  Report Type: Report from Study
  Country: CN (occurrence: CN)
  Receive Date: 20170426
  Receipt Date: 20170608
  Transmission Date: 20170830
  Serious: Yes (Hospitalization)
  Sender: FDA-Public Use
  Company Number: CN-EISAI MEDICAL RESEARCH-EC-2017-026973

PATIENT
  Age: 71 Year
  Sex: Male
  Weight: 65 kg

DRUGS (21)
  1. LENVATINIB [Suspect]
     Active Substance: LENVATINIB
     Route: 048
     Dates: start: 20160921, end: 20160924
  2. LENVATINIB [Suspect]
     Active Substance: LENVATINIB
     Route: 048
     Dates: start: 20170116, end: 20170216
  3. AMLODIPINE [Concomitant]
     Active Substance: AMLODIPINE BESYLATE
  4. LENVATINIB [Suspect]
     Active Substance: LENVATINIB
     Indication: HEPATOCELLULAR CARCINOMA
     Route: 048
     Dates: start: 20141024, end: 20150109
  5. LENVATINIB [Suspect]
     Active Substance: LENVATINIB
     Route: 048
     Dates: start: 20151127, end: 20160302
  6. LENVATINIB [Suspect]
     Active Substance: LENVATINIB
     Route: 048
     Dates: start: 20160602, end: 20160625
  7. LENVATINIB [Suspect]
     Active Substance: LENVATINIB
     Route: 048
     Dates: start: 20160831, end: 20160919
  8. LENVATINIB [Suspect]
     Active Substance: LENVATINIB
     Route: 048
     Dates: start: 20150111, end: 20151119
  9. LENVATINIB [Suspect]
     Active Substance: LENVATINIB
     Route: 048
     Dates: start: 20170330, end: 20170416
  10. LENVATINIB [Suspect]
     Active Substance: LENVATINIB
     Route: 048
     Dates: start: 20160306, end: 20160530
  11. LENVATINIB [Suspect]
     Active Substance: LENVATINIB
     Route: 048
     Dates: start: 20160627, end: 20160801
  12. LENVATINIB [Suspect]
     Active Substance: LENVATINIB
     Route: 048
     Dates: start: 20160804, end: 20160810
  13. LENVATINIB [Suspect]
     Active Substance: LENVATINIB
     Route: 048
     Dates: start: 20170423, end: 20170505
  14. RESERPINE AMMONIA BENZENE [Concomitant]
  15. LENVATINIB [Suspect]
     Active Substance: LENVATINIB
     Route: 048
     Dates: start: 20170219, end: 20170328
  16. ATENOLOL. [Concomitant]
     Active Substance: ATENOLOL
  17. ENALAPRIL [Concomitant]
     Active Substance: ENALAPRIL
  18. LENVATINIB [Suspect]
     Active Substance: LENVATINIB
     Route: 048
     Dates: start: 20160814, end: 20160825
  19. INSULIN [Concomitant]
     Active Substance: INSULIN NOS
  20. LAMIVUDINE. [Concomitant]
     Active Substance: LAMIVUDINE
  21. LENVATINIB [Suspect]
     Active Substance: LENVATINIB
     Route: 048
     Dates: start: 20160926, end: 20170114

REACTIONS (1)
  - Proteinuria [Recovering/Resolving]

NARRATIVE: CASE EVENT DATE: 20170407
